FAERS Safety Report 7015059-5 (Version None)
Quarter: 2010Q3

REPORT INFORMATION
  Report Type: 
  Country: None (occurrence: None)
  Receive Date: 20100927
  Receipt Date: 20100917
  Transmission Date: 20110219
  Serious: Yes (Hospitalization)
  Sender: FDA-Public Use
  Company Number: FR-SANOFI-AVENTIS-2010SA056235

PATIENT
  Age: 17 Year
  Sex: Male

DRUGS (3)
  1. INSULIN GLARGINE [Suspect]
     Route: 058
     Dates: start: 20080228
  2. HUMALOG [Suspect]
     Route: 058
     Dates: start: 20080228
  3. NOVORAPID [Suspect]
     Route: 058
     Dates: start: 20001201

REACTIONS (1)
  - EVANS SYNDROME [None]
